FAERS Safety Report 5831623-0 (Version None)
Quarter: 2008Q3

REPORT INFORMATION
  Report Type: 
  Country: None (occurrence: None)
  Receive Date: 20080730
  Receipt Date: 20080721
  Transmission Date: 20090109
  Serious: Yes (Hospitalization)
  Sender: FDA-Public Use
  Company Number: 2008AL008375

PATIENT
  Age: 81 Year
  Sex: Male
  Weight: 73.4827 kg

DRUGS (2)
  1. DIGOXIN [Suspect]
     Indication: CARDIAC DISORDER
     Dosage: 0.25MG, DAILY, PO
     Route: 048
     Dates: start: 20080419, end: 20080428
  2. DIGOXIN [Suspect]
     Dosage: 0.125MG DAILY PO
     Route: 048
     Dates: start: 20080501

REACTIONS (2)
  - THERAPEUTIC AGENT TOXICITY [None]
  - TRANSIENT ISCHAEMIC ATTACK [None]
